FAERS Safety Report 4776336-1 (Version None)
Quarter: 2005Q3

REPORT INFORMATION
  Report Type: 
  Country: None (occurrence: None)
  Receive Date: 20050921
  Receipt Date: 20050907
  Transmission Date: 20060218
  Serious: Yes (Hospitalization)
  Sender: FDA-Public Use
  Company Number: S05-SWE-03398-01

PATIENT
  Age: 53 Year
  Sex: Male

DRUGS (2)
  1. CAMPRAL [Suspect]
     Indication: ABSTAINS FROM ALCOHOL
     Dosage: 6 QD PO
     Route: 048
     Dates: start: 20050520, end: 20050525
  2. ATACAND [Suspect]
     Indication: HYPERTENSION
     Dosage: 1 TABLET QD PO
     Route: 048
     Dates: end: 20050530

REACTIONS (7)
  - BLOOD SODIUM DECREASED [None]
  - DEHYDRATION [None]
  - DIARRHOEA [None]
  - RENAL FAILURE ACUTE [None]
  - SYNCOPE [None]
  - ULTRASOUND LIVER ABNORMAL [None]
  - VOMITING [None]
